FAERS Safety Report 19832349 (Version 1)
Quarter: 2021Q3

REPORT INFORMATION
  Report Type: Spontaneous
  Country: NL (occurrence: NL)
  Receive Date: 20210914
  Receipt Date: 20210914
  Transmission Date: 20211014
  Serious: Yes (Other)
  Sender: FDA-Public Use
  Company Number: NL-MYLANLABS-2021M1062432

PATIENT
  Age: 56 Month
  Sex: Male

DRUGS (16)
  1. ISOTRETINOIN. [Suspect]
     Active Substance: ISOTRETINOIN
     Indication: NEUROBLASTOMA
     Dosage: 160 MILLIGRAM/SQ. METER(OD ON 14 DAYS (COURSE 6))
     Route: 065
  2. ISOTRETINOIN. [Suspect]
     Active Substance: ISOTRETINOIN
     Dosage: 160 MILLIGRAM/SQ. METER (OD ON 14 DAYS (COURSE 4))
     Route: 065
  3. ISOTRETINOIN. [Suspect]
     Active Substance: ISOTRETINOIN
     Dosage: 160 MILLIGRAM/SQ. METER(OD ON 14 DAYS (COURSE 5))
     Route: 065
  4. QARZIBA [Suspect]
     Active Substance: DINUTUXIMAB BETA
     Dosage: 20 MILLIGRAM/SQ. METER(GIVEN BY 8 HOUR INFUSION (MAX 16 HOURS) ON 5 DAYS, COURSE 4)
     Route: 042
  5. ISOTRETINOIN. [Suspect]
     Active Substance: ISOTRETINOIN
     Dosage: 160 MILLIGRAM/SQ. METER(OD ON 14 DAYS (COURSE 1))
     Route: 065
  6. QARZIBA [Suspect]
     Active Substance: DINUTUXIMAB BETA
     Dosage: 20 MILLIGRAM/SQ. METER(8 HOUR INFUSION (MAX 16 HOURS) ON 5  DAYS, COURSE 5)
     Route: 042
  7. SARGRAMOSTIM [Suspect]
     Active Substance: SARGRAMOSTIM
     Dosage: 250 MICROGRAM/SQ. METER(250 MICROGRAM/SQ. METER (OD ON 14 DAYS BY SUBCUTANEOUS ROUTE (COURSE 1))
     Route: 058
  8. QARZIBA [Suspect]
     Active Substance: DINUTUXIMAB BETA
     Indication: NEUROBLASTOMA
     Dosage: 20 MILLIGRAM/SQ. METER(GIVEN BY 8 HOUR INFUSION (MAX 16 HOURS) ON 5 DAYS, COURSE 3)
     Route: 042
  9. QARZIBA [Suspect]
     Active Substance: DINUTUXIMAB BETA
     Dosage: 20 MILLIGRAM/SQ. METER(8 HOUR INFUSION (MAX 16 HOURS) ON 5 CONSECUTIVE DAYS, COURSE 2)
     Route: 042
  10. QARZIBA [Suspect]
     Active Substance: DINUTUXIMAB BETA
     Dosage: 20 MILLIGRAM/SQ. METER(BY 8 HOUR INFUSION (MAX 16 HOURS) ON 5 CONSECUTIVE DAYS, COURSE 1)
     Route: 042
  11. INTERLEUKIN?2 [Suspect]
     Active Substance: ALDESLEUKIN
     Indication: NEUROBLASTOMA
     Dosage: 4.5 X 10^6 IU/M2/DAY ON 5 CONSECUTIVE DAYS INTRAVENOUS CONTINUOUS INFUSION IN WEEK 2 (COURSE 4)
     Route: 042
  12. INTERLEUKIN?2 [Suspect]
     Active Substance: ALDESLEUKIN
     Dosage: 4.5 X 10^6 IU/M2/DAY ON 5 DAYS BY INTRAVENOUS (IV) CONTINUOUS INFUSION IN WEEK 2 (COURSE 4)
     Route: 042
  13. SARGRAMOSTIM [Suspect]
     Active Substance: SARGRAMOSTIM
     Dosage: 250 MICROGRAM/SQ. METER (OD ON 14 DAYS BY SUBCUTANEOUS ROUTE (COURSE 5))
     Route: 058
  14. SARGRAMOSTIM [Suspect]
     Active Substance: SARGRAMOSTIM
     Indication: NEUROBLASTOMA
     Dosage: 250 MICROGRAM/SQ. METER (OD ON 14 DAYS BY SUBCUTANEOUS ROUTE (COURSE 3))
     Route: 058
  15. ISOTRETINOIN. [Suspect]
     Active Substance: ISOTRETINOIN
     Dosage: 160 MILLIGRAM/SQ. METER(OD ON 14 DAYS (COURSE 2))
     Route: 065
  16. ISOTRETINOIN. [Suspect]
     Active Substance: ISOTRETINOIN
     Dosage: 160 MILLIGRAM/SQ. METER(OD ON 14 DAYS (COURSE 3))
     Route: 065

REACTIONS (4)
  - Device related bacteraemia [Unknown]
  - Pain [Unknown]
  - Pyrexia [Unknown]
  - Cough [Unknown]
